FAERS Safety Report 15750857 (Version 6)
Quarter: 2019Q2

REPORT INFORMATION
  Report Type: Spontaneous
  Country: US (occurrence: US)
  Receive Date: 20181221
  Receipt Date: 20190417
  Transmission Date: 20190711
  Serious: Yes (Death, Life-Threatening, Other)
  Sender: FDA-Public Use
  Company Number: US-JNJFOC-20181223430

PATIENT
  Age: 81 Year
  Sex: Female
  Weight: 120 kg

DRUGS (16)
  1. TYLENOL [Suspect]
     Active Substance: ACETAMINOPHEN
     Route: 048
  2. MIDAZOLAM [Suspect]
     Active Substance: MIDAZOLAM HYDROCHLORIDE
     Indication: PRODUCT USED FOR UNKNOWN INDICATION
     Route: 042
     Dates: start: 20170708, end: 20170715
  3. MIDAZOLAM [Suspect]
     Active Substance: MIDAZOLAM HYDROCHLORIDE
     Indication: PRODUCT USED FOR UNKNOWN INDICATION
     Route: 042
     Dates: start: 20170708
  4. BUMETANIDE. [Concomitant]
     Active Substance: BUMETANIDE
     Route: 065
  5. LOPRESSOR [Concomitant]
     Active Substance: METOPROLOL TARTRATE
     Route: 065
  6. OMEPRAZOLE. [Concomitant]
     Active Substance: OMEPRAZOLE
     Route: 065
  7. LEVODOPA [Concomitant]
     Active Substance: LEVODOPA
     Route: 065
  8. RISPERDAL CONSTA [Suspect]
     Active Substance: RISPERIDONE
     Indication: PRODUCT USED FOR UNKNOWN INDICATION
     Route: 030
     Dates: start: 2007, end: 20170715
  9. METFORMIN [Concomitant]
     Active Substance: METFORMIN HYDROCHLORIDE
     Dosage: 1000 MG AND 650 MG
     Route: 065
  10. METFORMIN [Concomitant]
     Active Substance: METFORMIN HYDROCHLORIDE
     Route: 065
  11. ZOCOR [Concomitant]
     Active Substance: SIMVASTATIN
     Route: 065
  12. TYLENOL [Suspect]
     Active Substance: ACETAMINOPHEN
     Indication: PRODUCT USED FOR UNKNOWN INDICATION
     Route: 048
     Dates: start: 20070930, end: 2017
  13. ATIVAN [Suspect]
     Active Substance: LORAZEPAM
     Indication: PRODUCT USED FOR UNKNOWN INDICATION
     Dosage: 2 MG INJECTION IN MUSCLE FOR 8 HOURS
     Route: 065
     Dates: start: 2007, end: 2017
  14. COGENTIN [Concomitant]
     Active Substance: BENZTROPINE MESYLATE
     Route: 065
  15. LIPITOR [Concomitant]
     Active Substance: ATORVASTATIN CALCIUM
     Route: 065
  16. DUONEB [Concomitant]
     Active Substance: ALBUTEROL SULFATE\IPRATROPIUM BROMIDE
     Route: 065

REACTIONS (9)
  - Coma [Not Recovered/Not Resolved]
  - Overdose [Unknown]
  - Gait inability [Unknown]
  - Heart rate abnormal [Not Recovered/Not Resolved]
  - Hypoxic-ischaemic encephalopathy [Fatal]
  - Speech disorder [Unknown]
  - Diabetes mellitus [Unknown]
  - Anaemia [Unknown]
  - Loss of consciousness [Not Recovered/Not Resolved]

NARRATIVE: CASE EVENT DATE: 20170708
